FAERS Safety Report 4933983-1 (Version None)
Quarter: 2006Q1

REPORT INFORMATION
  Report Type: 
  Country: None (occurrence: None)
  Receive Date: 20060303
  Receipt Date: 20060220
  Transmission Date: 20060701
  Serious: Yes (Hospitalization)
  Sender: FDA-Public Use
  Company Number: DE-2006-003427

PATIENT
  Age: 67 Year
  Sex: Female

DRUGS (3)
  1. MAGNEVIST [Suspect]
     Indication: NUCLEAR MAGNETIC RESONANCE IMAGING
     Dosage: 22 ML, 1 DOSE,
     Dates: start: 20060116, end: 20060116
  2. ANTIHYPERTENSIVES() [Suspect]
     Indication: HYPERTENSION
     Dates: end: 20060201
  3. HYPERICUM PERFORATUM (HYPERICUM PERFORATUM) [Suspect]

REACTIONS (2)
  - HEPATIC FAILURE [None]
  - HEPATOTOXICITY [None]
